FAERS Safety Report 19779734 (Version 1)
Quarter: 2021Q3

REPORT INFORMATION
  Report Type: Spontaneous
  Country: EG (occurrence: EG)
  Receive Date: 20210902
  Receipt Date: 20210902
  Transmission Date: 20211014
  Serious: Yes (Other)
  Sender: FDA-Public Use
  Company Number: EG-PFIZER INC-2021742279

PATIENT
  Age: 63 Year
  Sex: Female

DRUGS (3)
  1. IBRANCE [Suspect]
     Active Substance: PALBOCICLIB
     Indication: LIPOSARCOMA RECURRENT
     Dosage: 125 MG, CYCLIC (ONCE DAILY FOR 3 WEEKS)
     Route: 048
     Dates: start: 20210318
  2. HOLOXAN [Concomitant]
     Active Substance: IFOSFAMIDE
     Indication: LIPOSARCOMA RECURRENT
  3. MESNA. [Concomitant]
     Active Substance: MESNA
     Indication: LIPOSARCOMA RECURRENT

REACTIONS (4)
  - Dyspnoea [Unknown]
  - Off label use [Unknown]
  - Pulmonary thrombosis [Unknown]
  - Chest pain [Unknown]
